FAERS Safety Report 6663249-3 (Version None)
Quarter: 2010Q2

REPORT INFORMATION
  Report Type: 
  Country: None (occurrence: None)
  Receive Date: 20100401
  Receipt Date: 20100324
  Transmission Date: 20101027
  Serious: Yes (Other)
  Sender: FDA-Public Use
  Company Number: CA-BAYER-201016077NA

PATIENT
  Age: 58 Year
  Sex: Male
  Weight: 76 kg

DRUGS (5)
  1. LEVITRA [Suspect]
     Indication: DRUG USE FOR UNKNOWN INDICATION
     Dosage: HALF TABLET
     Route: 048
     Dates: start: 20080101
  2. UNKNOWN DRUGS [Concomitant]
     Indication: HYPERTENSION
  3. ADALAT CC [Concomitant]
  4. ASPIRIN [Concomitant]
  5. LESCOL XL [Concomitant]

REACTIONS (1)
  - VISION BLURRED [None]
